FAERS Safety Report 18902400 (Version 1)
Quarter: 2021Q1

REPORT INFORMATION
  Report Type: Spontaneous
  Country: DE (occurrence: DE)
  Receive Date: 20210217
  Receipt Date: 20210217
  Transmission Date: 20210420
  Serious: Yes (Other)
  Sender: FDA-Public Use
  Company Number: DE-AUROBINDO-AUR-APL-2020-008947

PATIENT
  Sex: Female
  Weight: 77 kg

DRUGS (4)
  1. KISQALI [Suspect]
     Active Substance: RIBOCICLIB
     Indication: BREAST CANCER
     Dosage: 600 MILLIGRAM (21 DAYS INTAKE, 7 DAYS PAUSE)
     Route: 048
     Dates: start: 20200113, end: 20210112
  2. LUTEINIZING HORMONE?RELEASING HORMONE [Suspect]
     Active Substance: GONADORELIN
     Indication: BREAST CANCER
     Dosage: 11.25 MILLIGRAM EVERY 12 WEEKS
     Route: 058
     Dates: start: 20200128
  3. LETROZOLE. [Suspect]
     Active Substance: LETROZOLE
     Indication: BREAST CANCER
     Dosage: 2.5 MILLIGRAM, ONCE A DAY
     Route: 048
     Dates: start: 20200113
  4. KISQALI [Suspect]
     Active Substance: RIBOCICLIB
     Dosage: 600 MILLIGRAM (21 DAYS INTAKE, 7 DAYS PAUSE)
     Route: 048
     Dates: start: 20210112

REACTIONS (8)
  - Arthralgia [Not Recovered/Not Resolved]
  - Nausea [Recovered/Resolved]
  - Headache [Not Recovered/Not Resolved]
  - Lymphoedema [Not Recovered/Not Resolved]
  - Pain in extremity [Not Recovered/Not Resolved]
  - Diarrhoea [Recovered/Resolved]
  - Paraesthesia [Not Recovered/Not Resolved]
  - Breast pain [Not Recovered/Not Resolved]

NARRATIVE: CASE EVENT DATE: 20200125
